FAERS Safety Report 22636762 (Version 1)
Quarter: 2023Q2

REPORT INFORMATION
  Report Type: Spontaneous
  Country: US (occurrence: None)
  Receive Date: 20230621
  Receipt Date: 20230621
  Transmission Date: 20230722
  Serious: No
  Sender: FDA-Public Use
  Company Number: None

PATIENT
  Sex: Female

DRUGS (2)
  1. OPSUMIT [Suspect]
     Active Substance: MACITENTAN
     Indication: Pulmonary arterial hypertension
     Dosage: FREQUENCY : DAILY;?
     Route: 048
     Dates: start: 20211228
  2. UPTRAVI [Suspect]
     Active Substance: SELEXIPAG

REACTIONS (5)
  - Headache [None]
  - Nausea [None]
  - Vomiting [None]
  - Food poisoning [None]
  - Therapy interrupted [None]
